FAERS Safety Report 9858113 (Version 1)
Quarter: 2014Q1

REPORT INFORMATION
  Report Type: Spontaneous
  Country: US (occurrence: None)
  Receive Date: 20140129
  Receipt Date: 20140129
  Transmission Date: 20141002
  Serious: Yes (Other)
  Sender: FDA-Public Use
  Company Number: None

PATIENT
  Age: 86 Year
  Sex: Female
  Weight: 48.54 kg

DRUGS (1)
  1. LUMIGAN [Suspect]
     Dates: start: 20130428, end: 20130501

REACTIONS (3)
  - Visual impairment [None]
  - Asthenia [None]
  - Eyelid disorder [None]
